FAERS Safety Report 11765393 (Version 1)
Quarter: 2015Q4

REPORT INFORMATION
  Report Type: Spontaneous
  Country: US (occurrence: US)
  Receive Date: 20151120
  Receipt Date: 20151120
  Transmission Date: 20160304
  Serious: No
  Sender: FDA-Public Use
  Company Number: US-ELI_LILLY_AND_COMPANY-US201403000963

PATIENT
  Age: 67 Year
  Sex: Female

DRUGS (2)
  1. TESSALON [Concomitant]
     Active Substance: BENZONATATE
  2. FORTEO [Suspect]
     Active Substance: TERIPARATIDE
     Indication: OSTEOPOROSIS
     Dosage: UNK, QD
     Route: 065
     Dates: start: 20130815

REACTIONS (7)
  - Aphonia [Recovering/Resolving]
  - Dizziness [Recovered/Resolved]
  - Nausea [Unknown]
  - Drug dose omission [Unknown]
  - Cough [Recovering/Resolving]
  - Somnolence [Unknown]
  - Malaise [Recovering/Resolving]

NARRATIVE: CASE EVENT DATE: 20130815
